FAERS Safety Report 19400167 (Version 2)
Quarter: 2021Q3

REPORT INFORMATION
  Report Type: Spontaneous
  Country: JP (occurrence: JP)
  Receive Date: 20210610
  Receipt Date: 20210716
  Transmission Date: 20211014
  Serious: Yes (Other)
  Sender: FDA-Public Use
  Company Number: JP-PFIZER INC-2021632716

PATIENT
  Age: 86 Year
  Sex: Male
  Weight: 67.2 kg

DRUGS (13)
  1. MINOMYCIN [Concomitant]
     Active Substance: MINOCYCLINE HYDROCHLORIDE
     Indication: POST PROCEDURAL INFECTION
     Dosage: 50 MG, 2X/DAY
     Route: 048
     Dates: start: 20210408
  2. NAFTOPIDIL [Concomitant]
     Active Substance: NAFTOPIDIL
     Indication: BENIGN PROSTATIC HYPERPLASIA
  3. PRODIF [Concomitant]
     Active Substance: FOSFLUCONAZOLE
     Indication: SYSTEMIC MYCOSIS
     Dosage: 200 MG, DAILY
     Route: 041
     Dates: start: 20210305, end: 20210531
  4. LANSOPRAZOLE. [Concomitant]
     Active Substance: LANSOPRAZOLE
     Indication: PROPHYLAXIS AGAINST GASTROINTESTINAL ULCER
     Dosage: 15 MG, 1X/DAY
     Route: 048
     Dates: start: 20210208
  5. NAFTOPIDIL [Concomitant]
     Active Substance: NAFTOPIDIL
     Indication: DYSURIA
     Dosage: 5 MG, 1X/DAY
     Route: 048
     Dates: start: 20210208
  6. LYRICA [Suspect]
     Active Substance: PREGABALIN
     Indication: NEURALGIA
     Dosage: 150 MG, 2X/DAY
     Route: 048
     Dates: start: 20210208, end: 20210514
  7. LYRICA [Suspect]
     Active Substance: PREGABALIN
     Dosage: 75 MG, 2X/DAY
     Route: 048
     Dates: start: 20210515, end: 20210520
  8. MECOBALAMIN [Concomitant]
     Active Substance: METHYLCOBALAMIN
     Indication: NEUROPATHY PERIPHERAL
     Dosage: 500 UG, 3X/DAY
     Route: 048
     Dates: start: 20210208
  9. FEBURIC [Concomitant]
     Active Substance: FEBUXOSTAT
     Indication: HYPERURICAEMIA
     Dosage: 10 MG, 1X/DAY
     Route: 048
     Dates: start: 20210208
  10. LOXONIN [Concomitant]
     Active Substance: LOXOPROFEN SODIUM
     Indication: BACK PAIN
     Dosage: 60 MG, 3X/DAY
     Route: 048
     Dates: start: 20210208
  11. ZOLPIDEM [Concomitant]
     Active Substance: ZOLPIDEM TARTRATE
     Indication: INSOMNIA
     Dosage: 5 MG, 1X/DAY
     Route: 048
  12. BIOFERMLN?R [Concomitant]
     Indication: DYSBIOSIS
     Dosage: 3 DF, 3X/DAY
     Route: 048
     Dates: start: 20210208
  13. TRAMAL [Concomitant]
     Active Substance: TRAMADOL
     Indication: PAIN
     Dosage: 150 MG IN 4 DIVIDED DOSES, DAILY (50 MG, 25 MG, 50 MG, 25 MG)
     Route: 048
     Dates: start: 20210330

REACTIONS (1)
  - Hypokalaemia [Recovered/Resolved]

NARRATIVE: CASE EVENT DATE: 20210430
